FAERS Safety Report 6110249-8 (Version None)
Quarter: 2009Q1

REPORT INFORMATION
  Report Type: 
  Country: None (occurrence: None)
  Receive Date: 20090310
  Receipt Date: 20090310
  Transmission Date: 20090719
  Serious: Yes (Hospitalization)
  Sender: FDA-Public Use
  Company Number: US-RB-008446-09

PATIENT
  Age: 49 Year
  Sex: Female

DRUGS (3)
  1. SUBOXONE [Suspect]
     Dosage: UNKNOWN DOSE
  2. SUBOXONE [Suspect]
     Route: 060
     Dates: start: 20081206
  3. SEROQUEL [Concomitant]
     Dosage: UNKNOWN DOSE OR FREQUENCY

REACTIONS (2)
  - OEDEMA PERIPHERAL [None]
  - WITHDRAWAL SYNDROME [None]
